FAERS Safety Report 8782247 (Version 2)
Quarter: 2012Q4

REPORT INFORMATION
  Report Type: 
  Country: US (occurrence: US)
  Receive Date: 20120913
  Receipt Date: 20120927
  Transmission Date: 20130627
  Serious: No
  Sender: FDA-Public Use
  Company Number: US-ASTRAZENECA-2012SE65860

PATIENT
  Sex: Female

DRUGS (2)
  1. PULMICORT FLEXHALER [Suspect]
     Dosage: TWO PUFFS BID
     Route: 055
  2. PULMICORT FLEXHALER [Suspect]
     Dosage: 90 MCG
     Route: 055

REACTIONS (2)
  - Pulmonary congestion [Unknown]
  - Circumstance or information capable of leading to medication error [Unknown]
